FAERS Safety Report 6604114-7 (Version None)
Quarter: 2010Q1

REPORT INFORMATION
  Report Type: 
  Country: None (occurrence: None)
  Receive Date: 20100226
  Receipt Date: 20090527
  Transmission Date: 20100710
  Serious: Yes (Other)
  Sender: FDA-Public Use
  Company Number: A0786446A

PATIENT
  Age: 27 Year
  Sex: Female

DRUGS (2)
  1. LAMOTRIGINE [Suspect]
     Indication: EPILEPSY
     Dosage: 150MG TWICE PER DAY
     Route: 048
     Dates: start: 20080101
  2. VITAMINS [Concomitant]

REACTIONS (3)
  - CONVULSION [None]
  - FEELING ABNORMAL [None]
  - HEADACHE [None]
